FAERS Safety Report 12816888 (Version 5)
Quarter: 2018Q1

REPORT INFORMATION
  Report Type: Spontaneous
  Country: US (occurrence: US)
  Receive Date: 20161006
  Receipt Date: 20180129
  Transmission Date: 20180508
  Serious: Yes (Hospitalization, Other)
  Sender: FDA-Public Use
  Company Number: US-TEVA-698796USA

PATIENT
  Age: 60 Year
  Sex: Female

DRUGS (11)
  1. NORTRIPTYLINE [Concomitant]
     Active Substance: NORTRIPTYLINE
  2. COPAXONE [Suspect]
     Active Substance: GLATIRAMER ACETATE
     Dosage: SOLUTION
     Route: 058
     Dates: start: 20090922
  3. VALTREX [Concomitant]
     Active Substance: VALACYCLOVIR HYDROCHLORIDE
  4. VALSARTAN/ HCTZ [Concomitant]
     Active Substance: HYDROCHLOROTHIAZIDE\VALSARTAN
  5. COPAXONE [Suspect]
     Active Substance: GLATIRAMER ACETATE
     Indication: MULTIPLE SCLEROSIS
     Dosage: SOLUTION
     Route: 058
     Dates: start: 20140429
  6. BACLOFEN. [Concomitant]
     Active Substance: BACLOFEN
  7. PROPRANOLOL [Concomitant]
     Active Substance: PROPRANOLOL HYDROCHLORIDE
     Dates: start: 20171124
  8. ATORVASTATIN [Concomitant]
     Active Substance: ATORVASTATIN
  9. LIPITOR [Concomitant]
     Active Substance: ATORVASTATIN CALCIUM
  10. DICLOFENAC [Concomitant]
     Active Substance: DICLOFENAC
  11. PANTOPRAZOLE [Concomitant]
     Active Substance: PANTOPRAZOLE
     Dates: start: 20171124

REACTIONS (6)
  - Cellulitis [Unknown]
  - Neuralgia [Not Recovered/Not Resolved]
  - Fall [Unknown]
  - Injection site haemorrhage [Unknown]
  - Abscess [Not Recovered/Not Resolved]
  - Skin discolouration [Not Recovered/Not Resolved]

NARRATIVE: CASE EVENT DATE: 20171002
